FAERS Safety Report 13040299 (Version 1)
Quarter: 2016Q4

REPORT INFORMATION
  Report Type: Spontaneous
  Country: US (occurrence: US)
  Receive Date: 20161217
  Receipt Date: 20161217
  Transmission Date: 20170207
  Serious: Yes (Hospitalization)
  Sender: FDA-Public Use
  Company Number: None

PATIENT
  Age: 66 Year
  Sex: Female
  Weight: 68.9 kg

DRUGS (7)
  1. LEVIMIR INSULIN [Concomitant]
  2. METFORMIN [Concomitant]
     Active Substance: METFORMIN HYDROCHLORIDE
  3. CARBOPLATIN. [Suspect]
     Active Substance: CARBOPLATIN
     Dates: end: 20161115
  4. CYCLOPHOSPHAMIDE. [Suspect]
     Active Substance: CYCLOPHOSPHAMIDE
     Dates: end: 20161025
  5. DOXORUBICIN HYDROCHLORIDE. [Suspect]
     Active Substance: DOXORUBICIN HYDROCHLORIDE
     Dates: end: 20161025
  6. GLIPIZIDE. [Concomitant]
     Active Substance: GLIPIZIDE
  7. TAXOL [Suspect]
     Active Substance: PACLITAXEL
     Dates: end: 20161129

REACTIONS (5)
  - Blood glucose decreased [None]
  - Dysarthria [None]
  - Blood magnesium decreased [None]
  - Asthenia [None]
  - Urinary tract infection [None]

NARRATIVE: CASE EVENT DATE: 20161205
